FAERS Safety Report 23002415 (Version 12)
Quarter: 2024Q1

REPORT INFORMATION
  Report Type: Spontaneous
  Country: US (occurrence: US)
  Receive Date: 20230928
  Receipt Date: 20240214
  Transmission Date: 20240409
  Serious: No
  Sender: FDA-Public Use
  Company Number: US-Blueprint Medicines Corporation-SP-US-2023-001468

PATIENT
  Age: 78 Year
  Sex: Female

DRUGS (21)
  1. AYVAKIT [Suspect]
     Active Substance: AVAPRITINIB
     Indication: Systemic mastocytosis
     Route: 048
     Dates: start: 20230225
  2. AYVAKIT [Suspect]
     Active Substance: AVAPRITINIB
     Indication: Advanced systemic mastocytosis
     Route: 048
     Dates: start: 20230226
  3. AYVAKIT [Suspect]
     Active Substance: AVAPRITINIB
     Indication: Chronic myelomonocytic leukaemia
     Route: 065
  4. AYVAKIT [Suspect]
     Active Substance: AVAPRITINIB
     Route: 065
     Dates: start: 202302
  5. AYVAKIT [Suspect]
     Active Substance: AVAPRITINIB
     Route: 065
  6. AYVAKIT [Suspect]
     Active Substance: AVAPRITINIB
     Route: 048
     Dates: start: 20230225
  7. AYVAKIT [Suspect]
     Active Substance: AVAPRITINIB
     Route: 065
  8. AYVAKIT [Suspect]
     Active Substance: AVAPRITINIB
     Route: 065
  9. AYVAKIT [Suspect]
     Active Substance: AVAPRITINIB
     Route: 065
  10. AYVAKIT [Suspect]
     Active Substance: AVAPRITINIB
     Route: 065
     Dates: start: 202401
  11. AYVAKIT [Suspect]
     Active Substance: AVAPRITINIB
     Route: 048
     Dates: start: 20230224
  12. ARANESP [Concomitant]
     Active Substance: DARBEPOETIN ALFA
     Indication: Haemoglobin abnormal
     Route: 065
  13. INFLUENZA VIRUS VACCINE [Concomitant]
     Active Substance: INFLUENZA VIRUS VACCINE
     Indication: Influenza
     Route: 065
  14. rsv shot [Concomitant]
     Indication: Respiratory syncytial virus infection
     Route: 065
  15. covid shot [Concomitant]
     Indication: COVID-19
     Route: 065
  16. OMEPRAZOLE [Concomitant]
     Active Substance: OMEPRAZOLE
     Indication: Product used for unknown indication
     Route: 065
  17. TYLENOL EXTRA STRENGTH [Concomitant]
     Active Substance: ACETAMINOPHEN
     Indication: Product used for unknown indication
     Route: 065
  18. KRILL OIL [Concomitant]
     Active Substance: DIETARY SUPPLEMENT\KRILL OIL
     Indication: Product used for unknown indication
     Route: 065
  19. VITAMIN D [Concomitant]
     Active Substance: VITAMIN D NOS
     Indication: Product used for unknown indication
     Route: 065
  20. ATORVASTATIN [Concomitant]
     Active Substance: ATORVASTATIN
     Indication: Product used for unknown indication
     Route: 065
  21. SINGULAIR [Concomitant]
     Active Substance: MONTELUKAST SODIUM
     Indication: Dyspnoea
     Route: 065

REACTIONS (37)
  - Lacrimation increased [Not Recovered/Not Resolved]
  - Peripheral swelling [Not Recovered/Not Resolved]
  - Dysphonia [Not Recovered/Not Resolved]
  - Epistaxis [Recovering/Resolving]
  - Pain [Unknown]
  - Swelling [Not Recovered/Not Resolved]
  - Arthralgia [Not Recovered/Not Resolved]
  - Myalgia [Not Recovered/Not Resolved]
  - Periorbital swelling [Not Recovered/Not Resolved]
  - Dyspnoea [Not Recovered/Not Resolved]
  - Poor quality sleep [Not Recovered/Not Resolved]
  - Fatigue [Not Recovered/Not Resolved]
  - Muscular weakness [Not Recovered/Not Resolved]
  - Insomnia [Unknown]
  - Unevaluable event [Unknown]
  - Head discomfort [Not Recovered/Not Resolved]
  - Swelling face [Unknown]
  - Malaise [Unknown]
  - Somnolence [Unknown]
  - Nasal congestion [Unknown]
  - Chronic pigmented purpura [Not Recovered/Not Resolved]
  - Nasal dryness [Not Recovered/Not Resolved]
  - Dry mouth [Not Recovered/Not Resolved]
  - Eye pruritus [Not Recovered/Not Resolved]
  - Drug intolerance [Not Recovered/Not Resolved]
  - Breast mass [Not Recovered/Not Resolved]
  - Breast swelling [Unknown]
  - Flatulence [Not Recovered/Not Resolved]
  - Eye swelling [Unknown]
  - Haemoglobin decreased [Not Recovered/Not Resolved]
  - Nasal inflammation [Not Recovered/Not Resolved]
  - Eye inflammation [Not Recovered/Not Resolved]
  - Rectal discharge [Not Recovered/Not Resolved]
  - Brain fog [Not Recovered/Not Resolved]
  - Blood glucose increased [Not Recovered/Not Resolved]
  - Aphasia [Not Recovered/Not Resolved]
  - Memory impairment [Not Recovered/Not Resolved]

NARRATIVE: CASE EVENT DATE: 20230301
